FAERS Safety Report 4685170-2 (Version None)
Quarter: 2005Q2

REPORT INFORMATION
  Report Type: 
  Country: None (occurrence: None)
  Receive Date: 20050608
  Receipt Date: 20050602
  Transmission Date: 20051028
  Serious: Yes (Hospitalization, Other)
  Sender: FDA-Public Use
  Company Number: 200515123GDDC

PATIENT
  Age: 76 Year
  Sex: Male

DRUGS (8)
  1. LASIX [Suspect]
     Route: 048
     Dates: end: 19921215
  2. AMIODARONE HYDROCHLORIDE [Suspect]
     Route: 048
     Dates: end: 19921215
  3. PREDNISOLONE [Suspect]
     Route: 048
     Dates: end: 19921215
  4. IMDUR [Suspect]
     Dates: end: 19921215
  5. CAPTOPRIL [Suspect]
     Route: 048
  6. DIGOXIN [Suspect]
     Dates: end: 19921215
  7. THYROXINE SODIUM [Suspect]
     Dates: end: 19921215
  8. ASPIRIN [Suspect]
     Dates: end: 19921215

REACTIONS (1)
  - DUODENAL ULCER PERFORATION [None]
